FAERS Safety Report 5843140-2 (Version None)
Quarter: 2008Q3

REPORT INFORMATION
  Report Type: 
  Country: None (occurrence: None)
  Receive Date: 20080813
  Receipt Date: 20080731
  Transmission Date: 20090109
  Serious: No
  Sender: FDA-Public Use
  Company Number: US-BAYER-200829713NA

PATIENT
  Sex: Female

DRUGS (1)
  1. YAZ [Suspect]
     Indication: HIRSUTISM
     Route: 048

REACTIONS (2)
  - ACNE [None]
  - DEHYDROEPIANDROSTERONE INCREASED [None]
